FAERS Safety Report 5903716-0 (Version None)
Quarter: 2008Q3

REPORT INFORMATION
  Report Type: 
  Country: None (occurrence: None)
  Receive Date: 20080930
  Receipt Date: 20080918
  Transmission Date: 20090109
  Serious: No
  Sender: FDA-Public Use
  Company Number: US-B.I. PHARMACEUTICALS,INC./RIDGEFIELD-2008-BP-14701BP

PATIENT
  Sex: Male

DRUGS (1)
  1. CATAPRES-TTS-1 [Suspect]
     Indication: HYPERHIDROSIS
     Route: 061

REACTIONS (6)
  - APPLICATION SITE RASH [None]
  - ASTHENIA [None]
  - DERMATITIS [None]
  - ERYTHEMA [None]
  - RASH [None]
  - URTICARIA [None]
